FAERS Safety Report 15033917 (Version 1)
Quarter: 2018Q2

REPORT INFORMATION
  Report Type: Spontaneous
  Country: AT (occurrence: AT)
  Receive Date: 20180620
  Receipt Date: 20180620
  Transmission Date: 20180711
  Serious: Yes (Disabling)
  Sender: FDA-Public Use
  Company Number: AT-ABBVIE-18K-009-2390834-00

PATIENT
  Age: 45 Year
  Sex: Female

DRUGS (3)
  1. THYREX [Concomitant]
     Active Substance: LEVOTHYROXINE SODIUM
     Indication: HYPOTHYROIDISM
  2. CONCOR [Concomitant]
     Active Substance: BISOPROLOL FUMARATE
     Indication: HYPERTENSION
  3. HUMIRA [Suspect]
     Active Substance: ADALIMUMAB
     Indication: ANKYLOSING SPONDYLITIS
     Route: 058
     Dates: start: 201605, end: 201805

REACTIONS (1)
  - Acute disseminated encephalomyelitis [Recovered/Resolved with Sequelae]

NARRATIVE: CASE EVENT DATE: 201805
